FAERS Safety Report 26074882 (Version 1)
Quarter: 2025Q4

REPORT INFORMATION
  Report Type: Spontaneous
  Country: US (occurrence: US)
  Receive Date: 20251121
  Receipt Date: 20251121
  Transmission Date: 20260118
  Serious: Yes (Hospitalization, Other)
  Sender: AMGEN
  Company Number: US-AMGEN-USASP2025225194

PATIENT
  Age: 47 Year
  Sex: Female

DRUGS (6)
  1. RITUXIMAB [Suspect]
     Active Substance: RITUXIMAB
     Indication: Stiff person syndrome
     Dosage: UNK
     Route: 065
  2. RITUXIMAB [Suspect]
     Active Substance: RITUXIMAB
     Indication: Immunosuppressant drug therapy
  3. FILGRASTIM [Suspect]
     Active Substance: FILGRASTIM
     Indication: Product used for unknown indication
     Dosage: UNK
     Route: 065
  4. HUMAN IMMUNOGLOBULIN G [Concomitant]
     Active Substance: HUMAN IMMUNOGLOBULIN G
     Indication: Stiff person syndrome
     Route: 040
  5. BACLOFEN [Concomitant]
     Active Substance: BACLOFEN
     Indication: Stiff person syndrome
  6. DIAZEPAM [Concomitant]
     Active Substance: DIAZEPAM
     Indication: Stiff person syndrome

REACTIONS (11)
  - Stiff person syndrome [Recovered/Resolved]
  - Hepatic enzyme increased [Unknown]
  - Mucosal inflammation [Unknown]
  - Oedema peripheral [Unknown]
  - Vomiting [Unknown]
  - Nausea [Unknown]
  - Diarrhoea [Unknown]
  - Febrile neutropenia [Unknown]
  - Drug ineffective for unapproved indication [Unknown]
  - Off label use [Unknown]
  - Weight decreased [Unknown]
